FAERS Safety Report 5776027-4 (Version None)
Quarter: 2008Q2

REPORT INFORMATION
  Report Type: 
  Country: None (occurrence: None)
  Receive Date: 20080617
  Receipt Date: 20080612
  Transmission Date: 20081010
  Serious: Yes (Hospitalization, Other)
  Sender: FDA-Public Use
  Company Number: US-MERCK-0707USA03798

PATIENT
  Age: 74 Year
  Sex: Female

DRUGS (4)
  1. FOSAMAX [Suspect]
     Indication: OSTEOPOROSIS
     Route: 048
     Dates: start: 19971101
  2. FOSAMAX [Suspect]
     Route: 048
     Dates: end: 20050101
  3. INDERAL [Concomitant]
     Route: 065
  4. DETROL [Concomitant]
     Route: 065

REACTIONS (10)
  - ACARODERMATITIS [None]
  - ALCOHOL ABUSE [None]
  - DRUG HYPERSENSITIVITY [None]
  - HYPERKERATOSIS [None]
  - HYPOGLYCAEMIA [None]
  - MICROCYTOSIS [None]
  - OSTEOMYELITIS [None]
  - OSTEONECROSIS [None]
  - UPPER LIMB FRACTURE [None]
  - URINARY TRACT INFECTION [None]
